FAERS Safety Report 6582747-4 (Version None)
Quarter: 2010Q1

REPORT INFORMATION
  Report Type: 
  Country: None (occurrence: None)
  Receive Date: 20100216
  Receipt Date: 20100203
  Transmission Date: 20100710
  Serious: Yes (Death, Life-Threatening, Other)
  Sender: FDA-Public Use
  Company Number: JP-PFIZER INC-2009300864

PATIENT
  Age: 62 Year
  Sex: Female
  Weight: 45 kg

DRUGS (9)
  1. CAMPTOSAR [Suspect]
     Indication: COLORECTAL CANCER
     Dosage: 184.6 MG/M2, 240 MG/BODY
     Route: 041
     Dates: start: 20090922, end: 20091006
  2. 5-FU [Suspect]
     Indication: COLORECTAL CANCER
     Dosage: 2500 MG/M2, 3250 MG/BODY/D1-2
     Route: 041
     Dates: start: 20090922, end: 20091006
  3. CALCIUM LEVOFOLINATE [Concomitant]
     Indication: COLORECTAL CANCER
     Dosage: 211.5 MG/M2, 275 MG/BODY
     Route: 041
     Dates: start: 20090922, end: 20091006
  4. AVASTIN [Concomitant]
     Indication: COLORECTAL CANCER
     Dosage: 200 MG/BODY
     Route: 041
     Dates: start: 20090922, end: 20091006
  5. RINDERON #1 [Concomitant]
     Indication: MALAISE
     Dosage: 4 MG, UNK
     Route: 041
     Dates: start: 20091019, end: 20091021
  6. OMEPRAL [Concomitant]
     Indication: PROPHYLAXIS AGAINST GASTROINTESTINAL ULCER
     Dosage: 20 MG, UNK
     Route: 041
     Dates: start: 20091019, end: 20091021
  7. GLYCYRRHIZIN/GLYCINE/L-CYSTEINE HYDROCHLORIDE [Concomitant]
     Indication: HEPATIC FUNCTION ABNORMAL
     Dosage: 20 ML, 2X/DAY
     Route: 041
     Dates: start: 20091019, end: 20091021
  8. LASIX [Concomitant]
     Indication: ASCITES
     Dosage: 20 MG
     Route: 041
     Dates: start: 20091019, end: 20091021
  9. SOLDACTONE [Concomitant]
     Indication: ASCITES
     Dosage: 200 MG, 2X/DAY
     Route: 042
     Dates: start: 20091019, end: 20091021

REACTIONS (6)
  - BLOOD BILIRUBIN INCREASED [None]
  - DISSEMINATED INTRAVASCULAR COAGULATION [None]
  - HAEMOGLOBIN DECREASED [None]
  - LEUKOPENIA [None]
  - NEUTROPENIA [None]
  - THROMBOCYTOPENIA [None]
